FAERS Safety Report 8445177 (Version 2)
Quarter: 2012Q4

REPORT INFORMATION
  Report Type: Report from Study
  Country: JP (occurrence: JP)
  Receive Date: 20120307
  Receipt Date: 20121024
  Transmission Date: 20130627
  Serious: Yes (Life-Threatening)
  Sender: FDA-Public Use
  Company Number: JP-SANOFI-AVENTIS-2012SA014546

PATIENT
  Age: 57 Year
  Sex: Female
  Weight: 61 kg

DRUGS (12)
  1. RASBURICASE [Suspect]
     Indication: HYPERURICEMIA
     Route: 042
     Dates: start: 20111118, end: 20111124
  2. RASBURICASE [Suspect]
     Indication: ACUTE LYMPHOBLASTIC LEUKEMIA
     Route: 042
     Dates: start: 20111118, end: 20111124
  3. ENDOXAN [Concomitant]
     Indication: CHEMOTHERAPY
     Dosage: treatment schedule: 1 week
     Route: 042
     Dates: start: 20111119, end: 20111210
  4. DAUNOMYCIN [Concomitant]
     Indication: CHEMOTHERAPY
     Dosage: treatment schedule: 1-3 weeks
     Route: 042
     Dates: start: 20111119, end: 20111210
  5. ONCOVIN [Concomitant]
     Indication: CHEMOTHERAPY
     Dosage: treatment schdule: 1.8-15.22
     Route: 042
     Dates: start: 20111119, end: 20111210
  6. LEUNASE [Concomitant]
     Indication: CHEMOTHERAPY
     Dosage: dose: 3000u/m2, treatment schedule:4, 11, 13, 16, 18, 20
     Route: 042
     Dates: start: 20111119, end: 20111210
  7. PREDNISOLONE [Concomitant]
     Indication: CHEMOTHERAPY
     Dosage: treatment schedule: 1-7 weeks
     Route: 048
     Dates: start: 20111119, end: 20111210
  8. FLUCONAZOLE [Concomitant]
     Indication: PROPHYLACTIC
     Route: 048
     Dates: start: 20111118
  9. LANSOPRAZOLE [Concomitant]
     Indication: PROPHYLACTIC
     Route: 048
     Dates: start: 20111118
  10. MAGNESIUM OXIDE [Concomitant]
     Indication: PROPHYLACTIC
     Route: 048
     Dates: start: 20111118
  11. CRAVIT [Concomitant]
     Indication: PROPHYLACTIC
     Route: 048
     Dates: start: 20111122, end: 20111128
  12. CRAVIT [Concomitant]
     Indication: PROPHYLACTIC
     Route: 048
     Dates: start: 20111203, end: 20111210

REACTIONS (7)
  - Haemoglobin decreased [Recovered/Resolved]
  - Red blood cell count decreased [Recovered/Resolved]
  - White blood cell count decreased [Recovered/Resolved]
  - Neutrophil count decreased [Recovered/Resolved]
  - Lymphocyte count decreased [Recovered/Resolved]
  - Platelet count decreased [Recovered/Resolved]
  - Febrile neutropenia [Recovered/Resolved]
